FAERS Safety Report 4394956-3 (Version None)
Quarter: 2004Q3

REPORT INFORMATION
  Report Type: 
  Country: None (occurrence: None)
  Receive Date: 20040712
  Receipt Date: 20040628
  Transmission Date: 20050211
  Serious: Yes (Other)
  Sender: FDA-Public Use
  Company Number: FR-GLAXOSMITHKLINE-B0338476A

PATIENT
  Sex: Female

DRUGS (2)
  1. DEROXAT [Suspect]
     Indication: ILL-DEFINED DISORDER
     Route: 048
  2. BISOPROLOL FUMARATE [Suspect]
     Indication: ILL-DEFINED DISORDER

REACTIONS (1)
  - THROMBOCYTOPENIC PURPURA [None]
